FAERS Safety Report 8452452-8 (Version None)
Quarter: 2012Q2

REPORT INFORMATION
  Report Type: 
  Country: None (occurrence: None)
  Receive Date: 20120620
  Receipt Date: 20120411
  Transmission Date: 20120825
  Serious: No
  Sender: FDA-Public Use
  Company Number: US-VERTEX PHARMACEUTICALS INC.-AE-2012-005225

PATIENT
  Sex: Female
  Weight: 65.376 kg

DRUGS (4)
  1. PEGASYS [Concomitant]
     Indication: HEPATITIS C
     Route: 058
     Dates: start: 20120312
  2. INCIVEK [Suspect]
     Indication: HEPATITIS C
     Route: 048
     Dates: start: 20120312
  3. RIBAVIRIN [Concomitant]
     Indication: HEPATITIS C
     Route: 048
     Dates: start: 20120312, end: 20120410
  4. RIBAVIRIN [Concomitant]
     Route: 048
     Dates: start: 20120410

REACTIONS (6)
  - BACK PAIN [None]
  - HAEMOGLOBIN DECREASED [None]
  - ANORECTAL DISCOMFORT [None]
  - ANAL PRURITUS [None]
  - DECREASED APPETITE [None]
  - HEADACHE [None]
